FAERS Safety Report 8337668-3 (Version None)
Quarter: 2012Q2

REPORT INFORMATION
  Report Type: 
  Country: None (occurrence: None)
  Receive Date: 20120504
  Receipt Date: 20120504
  Transmission Date: 20120825
  Serious: No
  Sender: FDA-Public Use
  Company Number: None

PATIENT
  Age: 26 Year
  Sex: Female
  Weight: 79.378 kg

DRUGS (1)
  1. NUVARING [Suspect]
     Indication: CONTRACEPTION
     Dates: start: 20120228, end: 20120425

REACTIONS (8)
  - WEIGHT INCREASED [None]
  - DIZZINESS [None]
  - VERTIGO [None]
  - DYSSTASIA [None]
  - ALOPECIA [None]
  - ACNE [None]
  - FALL [None]
  - ABASIA [None]
